FAERS Safety Report 7615601-7 (Version None)
Quarter: 2011Q3

REPORT INFORMATION
  Report Type: 
  Country: None (occurrence: None)
  Receive Date: 20110708
  Receipt Date: 20110701
  Transmission Date: 20111222
  Serious: Yes (Other)
  Sender: FDA-Public Use
  Company Number: 1000021912

PATIENT
  Age: 60 Year
  Sex: Female

DRUGS (2)
  1. TEFLARO [Suspect]
     Indication: CELLULITIS
     Dosage: 1200 MG (600 MG,2 IN 1 D),INTRAVENOUS (NOT OTHERWISE SPECIFIED)
     Route: 042
  2. TEFLARO [Suspect]
     Indication: STAPHYLOCOCCAL INFECTION
     Dosage: 1200 MG (600 MG,2 IN 1 D),INTRAVENOUS (NOT OTHERWISE SPECIFIED)
     Route: 042

REACTIONS (3)
  - CLOSTRIDIUM DIFFICILE COLITIS [None]
  - RASH [None]
  - NEUTROPENIA [None]
